FAERS Safety Report 8581390 (Version 5)
Quarter: 2012Q4

REPORT INFORMATION
  Report Type: Report from Study
  Country: US (occurrence: US)
  Receive Date: 20120525
  Receipt Date: 20121112
  Transmission Date: 20130627
  Serious: Yes (Hospitalization)
  Sender: FDA-Public Use
  Company Number: US-TEVA-339633USA

PATIENT
  Age: 3 Year
  Sex: Female

DRUGS (29)
  1. VINCRISTINE [Suspect]
     Indication: ACUTE LYMPHOCYTIC LEUKAEMIA
     Dosage: 7 DAY
     Route: 042
     Dates: start: 20120416, end: 20120819
  2. DASATINIB [Suspect]
     Indication: ACUTE LYMPHOCYTIC LEUKAEMIA
     Dosage: 45 Milligram Daily;
     Route: 048
     Dates: start: 20120430
  3. DAUNORUBICIN HYDROCHLORIDE [Suspect]
     Indication: ACUTE LYMPHOCYTIC LEUKAEMIA
     Route: 042
     Dates: start: 20120416, end: 20120818
  4. DEXAMETHASONE [Suspect]
     Indication: ACUTE LYMPHOCYTIC LEUKAEMIA
     Dosage: 7 Milligram Daily;
     Route: 048
     Dates: start: 20120416, end: 20120910
  5. METHOTREXATE [Suspect]
     Indication: ACUTE LYMPHOCYTIC LEUKAEMIA
     Route: 037
     Dates: start: 20120423, end: 20120909
  6. PEGASPARGASE [Suspect]
     Indication: ACUTE LYMPHOCYTIC LEUKAEMIA
     Dates: start: 20120419, end: 20120910
  7. CYTARABINE [Suspect]
     Indication: ACUTE LYMPHOCYTIC LEUKAEMIA
     Route: 037
     Dates: start: 20120416, end: 20120909
  8. NYSTATIN [Concomitant]
     Dates: start: 20120422
  9. ZANTAC [Concomitant]
     Dates: start: 20120416
  10. ONDANSETRON [Concomitant]
     Dates: start: 20120430
  11. FUROSEMIDE [Concomitant]
     Dates: start: 20120427, end: 20120429
  12. BENADRYL [Concomitant]
     Dates: start: 20120724, end: 20120801
  13. FILGRASTIM [Concomitant]
     Dates: start: 20120730, end: 20120827
  14. LEUCOVORIN [Concomitant]
     Dates: start: 20120726, end: 20120816
  15. ATIVAN [Concomitant]
     Dates: start: 20120724, end: 20120819
  16. MAGIC MOUTHWASH [Concomitant]
     Dates: start: 20120801, end: 20120829
  17. PREDNISOLONE [Concomitant]
     Dates: start: 20120728, end: 20120802
  18. SEPTRA [Concomitant]
     Dates: start: 201204
  19. KETAMINE [Concomitant]
     Dates: start: 20120724, end: 20120814
  20. VERSED [Concomitant]
     Dates: start: 20120724, end: 20120724
  21. VERSED [Concomitant]
     Dates: start: 20120814, end: 20120814
  22. MORPHINE [Concomitant]
     Dates: start: 20120804, end: 20120829
  23. MIRALAX [Concomitant]
     Dates: start: 20120729, end: 20120829
  24. MESNA [Concomitant]
     Dates: start: 20120815, end: 20120817
  25. VINCRISTINE [Concomitant]
     Dates: start: 20120729, end: 20120819
  26. HISTAMINE [Concomitant]
     Dates: start: 20120815, end: 20120817
  27. DIPHENHYDRAMINE [Concomitant]
     Dates: start: 20120814, end: 20120819
  28. LORAZEPAM [Concomitant]
     Dates: start: 20120814, end: 20120819
  29. SODIUM BICARBONATE [Concomitant]
     Dates: start: 20120814, end: 20120829

REACTIONS (2)
  - Neutropenia [Recovered/Resolved]
  - Device related infection [Recovered/Resolved]
